FAERS Safety Report 6743386-5 (Version None)
Quarter: 2010Q2

REPORT INFORMATION
  Report Type: 
  Country: None (occurrence: None)
  Receive Date: 20100527
  Receipt Date: 20100518
  Transmission Date: 20101027
  Serious: Yes (Hospitalization)
  Sender: FDA-Public Use
  Company Number: JP-ASTRAZENECA-2010SE23535

PATIENT
  Age: 25800 Day
  Sex: Male

DRUGS (8)
  1. COKENZEN [Suspect]
     Indication: HYPERTENSION
     Dosage: 8/12.5, 1 DF DAILY
     Route: 048
     Dates: end: 20100503
  2. OGASTORO [Suspect]
     Indication: DRUG USE FOR UNKNOWN INDICATION
     Route: 048
  3. REQUIP [Suspect]
     Indication: PARKINSON'S DISEASE
     Route: 048
  4. PLAVIX [Suspect]
     Indication: DRUG USE FOR UNKNOWN INDICATION
     Route: 048
  5. SERETIDE DISKUS [Suspect]
     Indication: ASTHMA
     Route: 055
  6. BRONCHODUAL [Suspect]
     Indication: ASTHMA
     Route: 055
  7. PRAVASTATINE SODIQUE [Suspect]
     Indication: HYPERCHOLESTEROLAEMIA
     Route: 048
     Dates: start: 20090622
  8. MODOPAR [Suspect]
     Indication: PARKINSON'S DISEASE
     Route: 048

REACTIONS (1)
  - ASTHMA [None]
